FAERS Safety Report 22063515 (Version 1)
Quarter: 2023Q1

REPORT INFORMATION
  Report Type: Spontaneous
  Country: US (occurrence: US)
  Receive Date: 20230306
  Receipt Date: 20230306
  Transmission Date: 20230418
  Serious: No
  Sender: FDA-Public Use
  Company Number: US-AUROBINDO-AUR-APL-2022-055083

PATIENT
  Age: 58 Year
  Sex: Female
  Weight: 76.644 kg

DRUGS (1)
  1. LEVETIRACETAM [Suspect]
     Active Substance: LEVETIRACETAM
     Indication: Seizure
     Dosage: 5 MILLILITER, TWO TIMES A DAY
     Route: 065

REACTIONS (2)
  - Somnolence [Recovered/Resolved]
  - Product quality issue [Unknown]
